FAERS Safety Report 8049696-6 (Version None)
Quarter: 2012Q1

REPORT INFORMATION
  Report Type: 
  Country: None (occurrence: None)
  Receive Date: 20120117
  Receipt Date: 20120106
  Transmission Date: 20120608
  Serious: Yes (Death, Hospitalization)
  Sender: FDA-Public Use
  Company Number: DK-GLAXOSMITHKLINE-B0729933A

PATIENT
  Sex: Female
  Weight: 175 kg

DRUGS (1)
  1. MALARONE [Suspect]
     Indication: MALARIA PROPHYLAXIS
     Route: 065
     Dates: start: 20041118, end: 20041127

REACTIONS (4)
  - INJURY [None]
  - COMPLETED SUICIDE [None]
  - THINKING ABNORMAL [None]
  - PSYCHOTIC DISORDER [None]
